FAERS Safety Report 8026073-5 (Version None)
Quarter: 2012Q1

REPORT INFORMATION
  Report Type: 
  Country: None (occurrence: None)
  Receive Date: 20120105
  Receipt Date: 20110523
  Transmission Date: 20120608
  Serious: No
  Sender: FDA-Public Use
  Company Number: US-ABBOTT-11P-163-0728108-00

PATIENT
  Sex: Female

DRUGS (4)
  1. SYNTHROID [Suspect]
     Dates: start: 19880101, end: 19920101
  2. SYNTHROID [Suspect]
     Indication: HYPOTHYROIDISM
     Dates: start: 19920101
  3. MULTI-VITAMINS [Concomitant]
     Indication: PRODUCT USED FOR UNKNOWN INDICATION
  4. TENORMIN [Concomitant]
     Indication: HEART RATE IRREGULAR

REACTIONS (5)
  - GLOSSODYNIA [None]
  - VITAMIN D DECREASED [None]
  - BLOOD THYROID STIMULATING HORMONE INCREASED [None]
  - VITAMIN B12 DECREASED [None]
  - COELIAC DISEASE [None]
